FAERS Safety Report 12533673 (Version 1)
Quarter: 2016Q3

REPORT INFORMATION
  Report Type: Spontaneous
  Country: US (occurrence: US)
  Receive Date: 20160706
  Receipt Date: 20160706
  Transmission Date: 20161109
  Serious: No
  Sender: FDA-Public Use
  Company Number: US-PURDUE-USA-2016-0128814

PATIENT
  Sex: Female

DRUGS (1)
  1. BUTRANS [Suspect]
     Active Substance: BUPRENORPHINE
     Indication: PAIN
     Dosage: 20 MCG/HR, WEEKLY
     Route: 062

REACTIONS (10)
  - Drug ineffective [Unknown]
  - Device leakage [Unknown]
  - Application site nerve damage [Unknown]
  - Application site burn [Unknown]
  - Feeling abnormal [Unknown]
  - Dyspnoea [Unknown]
  - Hypoaesthesia [Unknown]
  - Miosis [Unknown]
  - Application site pruritus [Unknown]
  - Application site pain [Unknown]
